FAERS Safety Report 10010961 (Version 3)
Quarter: 2014Q2

REPORT INFORMATION
  Report Type: Spontaneous
  Country: JP (occurrence: None)
  Receive Date: 20140312
  Receipt Date: 20140609
  Transmission Date: 20141212
  Serious: Yes (Hospitalization)
  Sender: FDA-Public Use
  Company Number: AXC-2014-000151

PATIENT
  Age: 88 Year
  Sex: Female

DRUGS (2)
  1. URSODEOXYCHOLIC ACID [Suspect]
     Indication: HEPATIC CIRRHOSIS
     Route: 048
     Dates: end: 20131019
  2. MAGMITT (MAGNESIUM OXIDE) [Concomitant]

REACTIONS (8)
  - Faecalith [None]
  - Abdominal pain [None]
  - Vomiting [None]
  - Ileus [None]
  - Intussusception [None]
  - Malnutrition [None]
  - Ascites [None]
  - Pleural effusion [None]
